FAERS Safety Report 22098327 (Version 1)
Quarter: 2023Q1

REPORT INFORMATION
  Report Type: Spontaneous
  Country: US (occurrence: None)
  Receive Date: 20230314
  Receipt Date: 20230314
  Transmission Date: 20230418
  Serious: No
  Sender: FDA-Public Use
  Company Number: None

PATIENT
  Age: 21 Year
  Sex: Female
  Weight: 67.5 kg

DRUGS (3)
  1. VYVANSE [Suspect]
     Active Substance: LISDEXAMFETAMINE DIMESYLATE
     Indication: Attention deficit hyperactivity disorder
     Dosage: OTHER QUANTITY : 30 CAPSULE(S);?
     Route: 048
     Dates: start: 20230309, end: 20230313
  2. Vyvanse, birth control [Concomitant]
  3. FLAXSEED [Concomitant]
     Active Substance: FLAX SEED

REACTIONS (6)
  - Drug ineffective [None]
  - Nausea [None]
  - Urticaria [None]
  - Dizziness [None]
  - Irritability [None]
  - Somnolence [None]

NARRATIVE: CASE EVENT DATE: 20230309
